FAERS Safety Report 14006994 (Version 4)
Quarter: 2017Q4

REPORT INFORMATION
  Report Type: Spontaneous
  Country: US (occurrence: US)
  Receive Date: 20170925
  Receipt Date: 20171227
  Transmission Date: 20180321
  Serious: No
  Sender: FDA-Public Use
  Company Number: US-PFIZER INC-2017413221

PATIENT
  Age: 65 Year
  Sex: Female

DRUGS (6)
  1. AROMASIN [Suspect]
     Active Substance: EXEMESTANE
     Dosage: 25 MG, DAILY
     Route: 048
  2. D3 +K2 [Concomitant]
     Indication: SUPPLEMENTATION THERAPY
     Dosage: 1 DF, DAILY (D3 2000 IU, VITAMIN K2 (MK-7) 90 MCG)
     Route: 048
     Dates: start: 2016
  3. MULTIVITAMINS /00116001/ [Concomitant]
     Active Substance: VITAMINS
  4. AROMASIN [Suspect]
     Active Substance: EXEMESTANE
     Indication: ANTIOESTROGEN THERAPY
     Dosage: 25 MG, 1X/DAY
     Dates: start: 20170207
  5. PROBIOTIC [Concomitant]
     Active Substance: PROBIOTICS NOS
     Indication: SUPPLEMENTATION THERAPY
     Dosage: UNK
     Dates: start: 2013
  6. CALCIUM + MAGNESIUM [Concomitant]
     Indication: MINERAL SUPPLEMENTATION
     Dosage: 25 MG, DAILY
     Route: 048

REACTIONS (1)
  - Arthritis [Not Recovered/Not Resolved]

NARRATIVE: CASE EVENT DATE: 201709
